FAERS Safety Report 22066928 (Version 1)
Quarter: 2023Q1

REPORT INFORMATION
  Report Type: Spontaneous
  Country: US (occurrence: US)
  Receive Date: 20230306
  Receipt Date: 20230306
  Transmission Date: 20230417
  Serious: Yes (Hospitalization, Other)
  Sender: FDA-Public Use
  Company Number: US-ALVOGEN-2023089322

PATIENT
  Sex: Female

DRUGS (2)
  1. DECADRON [Suspect]
     Active Substance: DEXAMETHASONE
     Indication: Breast cancer
     Dates: start: 202212
  2. TUKYSA [Concomitant]
     Active Substance: TUCATINIB
     Indication: Breast cancer

REACTIONS (2)
  - Metastases to lung [Unknown]
  - Adverse reaction [Unknown]

NARRATIVE: CASE EVENT DATE: 20230109
